FAERS Safety Report 15542670 (Version 1)
Quarter: 2018Q4

REPORT INFORMATION
  Report Type: Spontaneous
  Country: US (occurrence: US)
  Receive Date: 20181017
  Receipt Date: 20181017
  Transmission Date: 20190205
  Serious: Yes (Hospitalization)
  Sender: FDA-Public Use
  Company Number: None

PATIENT
  Age: 69 Year
  Sex: Male
  Weight: 120.93 kg

DRUGS (1)
  1. IOHEXOL [Suspect]
     Active Substance: IOHEXOL
     Indication: COMPUTERISED TOMOGRAM ABDOMEN
     Dates: start: 20180802, end: 20180802

REACTIONS (6)
  - Cough [None]
  - Dyspnoea [None]
  - Tachycardia [None]
  - Hypertension [None]
  - Rash macular [None]
  - Wheezing [None]

NARRATIVE: CASE EVENT DATE: 20180802
